FAERS Safety Report 9311313 (Version 2)
Quarter: 2013Q2

REPORT INFORMATION
  Report Type: Spontaneous
  Country: DE (occurrence: DE)
  Receive Date: 20130528
  Receipt Date: 20130605
  Transmission Date: 20140414
  Serious: Yes (Other)
  Sender: FDA-Public Use
  Company Number: DE-JNJFOC-20130515652

PATIENT
  Sex: Male

DRUGS (1)
  1. NICORETTE FRESHMINT UNSPECIFIED [Suspect]
     Indication: SMOKING CESSATION THERAPY
     Route: 048
     Dates: start: 2009

REACTIONS (2)
  - Nicotine dependence [Not Recovered/Not Resolved]
  - Intentional drug misuse [Unknown]
